FAERS Safety Report 23756885 (Version 1)
Quarter: 2024Q2

REPORT INFORMATION
  Report Type: Spontaneous
  Country: DE (occurrence: DE)
  Receive Date: 20240418
  Receipt Date: 20240418
  Transmission Date: 20240715
  Serious: Yes (Hospitalization, Other)
  Sender: FDA-Public Use
  Company Number: None

PATIENT
  Sex: Female
  Weight: 89 kg

DRUGS (2)
  1. PACLITAXEL [Suspect]
     Active Substance: PACLITAXEL
     Indication: Product used for unknown indication
     Dosage: 10:50 AM IN 500 ML ISOTONIC SALINE (NACL 0.9%) WITH STERIFLEX INFUSION FILTER?ROUTE OF ADMIN: INTRAV
     Dates: start: 20240307
  2. CARBOPLATIN [Concomitant]
     Active Substance: CARBOPLATIN
     Indication: Product used for unknown indication
     Dosage: ROA: INTRAVENOUS?FOA: {UNKNOWN
     Dates: start: 20240307

REACTIONS (10)
  - Unresponsive to stimuli [Recovering/Resolving]
  - Muscle spasms [Recovering/Resolving]
  - Erythema [Recovering/Resolving]
  - Muscle twitching [Recovering/Resolving]
  - Dyspnoea [Recovering/Resolving]
  - Enuresis [Recovering/Resolving]
  - Eye movement disorder [Recovering/Resolving]
  - Seizure [Recovering/Resolving]
  - Salivary hypersecretion [Recovering/Resolving]
  - Dizziness [Recovering/Resolving]
